FAERS Safety Report 7584528-1 (Version None)
Quarter: 2011Q2

REPORT INFORMATION
  Report Type: 
  Country: None (occurrence: None)
  Receive Date: 20110630
  Receipt Date: 20110620
  Transmission Date: 20111010
  Serious: Yes (Hospitalization)
  Sender: FDA-Public Use
  Company Number: US-CELGENEUS-163-21880-11062900

PATIENT
  Sex: Male

DRUGS (7)
  1. REVLIMID [Suspect]
     Dosage: 15 MILLIGRAM
     Route: 048
     Dates: start: 20091002
  2. METFORMIN HCL [Concomitant]
     Route: 065
  3. LISINOPRIL [Concomitant]
     Route: 065
  4. ZOCOR [Concomitant]
     Route: 065
  5. COZAAR [Concomitant]
     Route: 065
  6. ASPIRIN [Concomitant]
     Route: 065
  7. SPIRIVA [Concomitant]
     Route: 055

REACTIONS (1)
  - BURNS THIRD DEGREE [None]
